FAERS Safety Report 5939429-9 (Version None)
Quarter: 2008Q4

REPORT INFORMATION
  Report Type: 
  Country: None (occurrence: None)
  Receive Date: 20081103
  Receipt Date: 20081021
  Transmission Date: 20090506
  Serious: Yes (Hospitalization)
  Sender: FDA-Public Use
  Company Number: CA-ELI_LILLY_AND_COMPANY-CA200810005275

PATIENT
  Age: 77 Year
  Sex: Female

DRUGS (9)
  1. FORTEO [Suspect]
     Indication: OSTEOPOROSIS
     Dosage: 20 UG, DAILY (1/D)
     Dates: start: 20080313
  2. HYDRODIURIL [Concomitant]
  3. ASAPHEN [Concomitant]
  4. ATIVAN [Concomitant]
  5. PLAQUENIL [Concomitant]
  6. PHYLLOCONTIN [Concomitant]
  7. VENTOLIN                                /SCH/ [Concomitant]
  8. SEREVENT [Concomitant]
  9. PULMICORT-100 [Concomitant]

REACTIONS (3)
  - ARTHRALGIA [None]
  - DYSPNOEA [None]
  - FATIGUE [None]
